FAERS Safety Report 14945214 (Version 14)
Quarter: 2020Q1

REPORT INFORMATION
  Report Type: Report from Study
  Country: DE (occurrence: DE)
  Receive Date: 20180529
  Receipt Date: 20200303
  Transmission Date: 20200409
  Serious: Yes (Other)
  Sender: FDA-Public Use
  Company Number: DE-ROCHE-2121184

PATIENT
  Age: 50 Year
  Sex: Female

DRUGS (16)
  1. DICLOFENAC [Suspect]
     Active Substance: DICLOFENAC
     Indication: BACK PAIN
     Route: 065
     Dates: start: 20190122
  2. RAMIPRIL. [Concomitant]
     Active Substance: RAMIPRIL
     Indication: HYPERTENSION
     Route: 065
  3. RAMIPRIL. [Concomitant]
     Active Substance: RAMIPRIL
     Route: 065
  4. FOLVERLAN [Concomitant]
     Active Substance: FOLIC ACID
     Route: 065
  5. CARBAMAZEPINE. [Concomitant]
     Active Substance: CARBAMAZEPINE
     Dosage: 1-0-0
     Route: 065
  6. ASPIRIN. [Concomitant]
     Active Substance: ASPIRIN
     Route: 048
  7. NOVOPULMON [Concomitant]
     Active Substance: BUDESONIDE
     Dosage: 2 HUBS PER DAY
     Route: 065
  8. OCREVUS [Suspect]
     Active Substance: OCRELIZUMAB
     Route: 042
     Dates: start: 20181106
  9. AMITRIPTYLINE [Suspect]
     Active Substance: AMITRIPTYLINE
     Indication: PRODUCT USED FOR UNKNOWN INDICATION
     Route: 065
  10. BACLOFENUM [Concomitant]
     Route: 065
  11. DEKRISTOL [Concomitant]
     Active Substance: CHOLECALCIFEROL
     Route: 065
  12. OCREVUS [Suspect]
     Active Substance: OCRELIZUMAB
     Dosage: SECOND DOSE
     Route: 042
     Dates: start: 20180517, end: 20180517
  13. PANTOPRAZOL [PANTOPRAZOLE] [Concomitant]
     Active Substance: PANTOPRAZOLE
     Route: 065
  14. AMITRIPTYLINE [Suspect]
     Active Substance: AMITRIPTYLINE
     Route: 065
  15. AMITRIPTYLINE [Suspect]
     Active Substance: AMITRIPTYLINE
     Route: 065
  16. OCREVUS [Suspect]
     Active Substance: OCRELIZUMAB
     Indication: RELAPSING-REMITTING MULTIPLE SCLEROSIS
     Route: 042
     Dates: start: 20180503, end: 20180503

REACTIONS (34)
  - Gastroenteritis norovirus [Recovered/Resolved]
  - Infusion related reaction [Recovered/Resolved]
  - Urticaria [Recovered/Resolved]
  - Abdominal pain upper [Recovered/Resolved]
  - Pruritus [Recovered/Resolved]
  - Therapeutic product effect decreased [Recovered/Resolved]
  - Spinal stenosis [Not Recovered/Not Resolved]
  - C-reactive protein increased [Recovering/Resolving]
  - Fatigue [Not Recovered/Not Resolved]
  - Paraesthesia [Recovered/Resolved]
  - Dyspnoea [Recovering/Resolving]
  - Arthralgia [Not Recovered/Not Resolved]
  - Terminal insomnia [Not Recovered/Not Resolved]
  - Dizziness [Recovered/Resolved]
  - Cholelithiasis [Not Recovered/Not Resolved]
  - Back pain [Recovered/Resolved]
  - Migraine [Not Recovered/Not Resolved]
  - Herpes virus infection [Not Recovered/Not Resolved]
  - Insomnia [Recovered/Resolved]
  - Nausea [Unknown]
  - Nasopharyngitis [Not Recovered/Not Resolved]
  - Multiple sclerosis [Not Recovered/Not Resolved]
  - Infection [Recovered/Resolved]
  - Dyspepsia [Unknown]
  - Osteoarthritis [Not Recovered/Not Resolved]
  - Rash [Recovered/Resolved]
  - Acquired diaphragmatic eventration [Not Recovered/Not Resolved]
  - Headache [Recovered/Resolved]
  - Chest discomfort [Recovering/Resolving]
  - Fatigue [Not Recovered/Not Resolved]
  - Feeling abnormal [Unknown]
  - Fatigue [Not Recovered/Not Resolved]
  - Fatigue [Recovered/Resolved]
  - Memory impairment [Not Recovered/Not Resolved]

NARRATIVE: CASE EVENT DATE: 20180503
